FAERS Safety Report 16532020 (Version 1)
Quarter: 2019Q3

REPORT INFORMATION
  Report Type: Spontaneous
  Country: GB (occurrence: GB)
  Receive Date: 20190704
  Receipt Date: 20190704
  Transmission Date: 20191004
  Serious: Yes (Hospitalization)
  Sender: FDA-Public Use
  Company Number: GB-ACCORD-136970

PATIENT
  Age: 81 Year
  Sex: Female

DRUGS (12)
  1. FOLIC ACID. [Concomitant]
     Active Substance: FOLIC ACID
     Dosage: MORNING.
     Route: 048
  2. PREDNISOLONE. [Concomitant]
     Active Substance: PREDNISOLONE
     Dosage: MORNING. RIGHT EYE.
     Route: 031
  3. ATORVASTATIN [Concomitant]
     Active Substance: ATORVASTATIN
     Dosage: NIGHT.
     Route: 048
  4. RAMIPRIL. [Suspect]
     Active Substance: RAMIPRIL
     Indication: PRODUCT USED FOR UNKNOWN INDICATION
     Dosage: MORNING
     Route: 048
  5. ACETAZOLAMIDE/ACETAZOLAMIDE SODIUM [Concomitant]
     Dosage: MORNING AND NIGHT.
     Route: 048
  6. LETROZOLE. [Concomitant]
     Active Substance: LETROZOLE
     Dosage: MORNING.
     Route: 048
  7. CALCIUM/COLECALCIFEROL [Concomitant]
     Dosage: COLECALCIFEROL 200UNIT / CALCIUM CARBONATE 750MG TABLETS
     Route: 048
  8. BENDROFLUMETHIAZIDE [Suspect]
     Active Substance: BENDROFLUMETHIAZIDE
     Indication: PRODUCT USED FOR UNKNOWN INDICATION
     Dosage: MORNING.
     Route: 048
  9. TIMOLOL. [Concomitant]
     Active Substance: TIMOLOL
     Dosage: MANE. 5MG/ML. LEFT EYE.
     Route: 031
  10. DORZOLAMIDE [Concomitant]
     Active Substance: DORZOLAMIDE
     Dosage: NIGHT. 20MG/ML
     Route: 031
  11. IRON [Concomitant]
     Active Substance: IRON
     Route: 048
  12. ALENDRONATE SODIUM/ALENDRONIC ACID [Concomitant]
     Dosage: FRIDAYS
     Route: 048

REACTIONS (4)
  - Labile blood pressure [Unknown]
  - Acute kidney injury [Recovered/Resolved]
  - Hypokalaemia [Recovered/Resolved]
  - Fall [Unknown]

NARRATIVE: CASE EVENT DATE: 20190504
